FAERS Safety Report 15133123 (Version 1)
Quarter: 2018Q3

REPORT INFORMATION
  Report Type: Report from Study
  Country: US (occurrence: US)
  Receive Date: 20180712
  Receipt Date: 20180712
  Transmission Date: 20181010
  Serious: Yes (Hospitalization, Other)
  Sender: FDA-Public Use
  Company Number: US-BRISTOL-MYERS SQUIBB COMPANY-BMS-2018-030244

PATIENT
  Age: 69 Year
  Sex: Male
  Weight: 75.1 kg

DRUGS (1)
  1. NIVOLUMAB [Suspect]
     Active Substance: NIVOLUMAB
     Indication: LUNG SQUAMOUS CELL CARCINOMA STAGE IV
     Dosage: 3 MG/KG, QCYCLE
     Route: 042
     Dates: start: 20171222, end: 20180314

REACTIONS (8)
  - Syncope [Recovered/Resolved with Sequelae]
  - Joint dislocation [Recovering/Resolving]
  - Dyspnoea [Recovered/Resolved with Sequelae]
  - Productive cough [Recovered/Resolved with Sequelae]
  - Dysphagia [Recovered/Resolved with Sequelae]
  - Non-cardiac chest pain [Recovered/Resolved with Sequelae]
  - Aspiration [Recovering/Resolving]
  - Musculoskeletal pain [Recovering/Resolving]

NARRATIVE: CASE EVENT DATE: 20180321
